FAERS Safety Report 4615239-X (Version None)
Quarter: 2005Q1

REPORT INFORMATION
  Report Type: 
  Country: None (occurrence: None)
  Receive Date: 20050317
  Receipt Date: 20050307
  Transmission Date: 20050727
  Serious: Yes (Congenital Anomaly)
  Sender: FDA-Public Use
  Company Number: 2005-DE-00918GD

PATIENT

DRUGS (4)
  1. ACETAMINOPHEN [Suspect]
     Dosage: IU
     Route: 015
  2. AMOXICILLIN [Suspect]
     Dosage: IU
     Route: 015
  3. METOCLOPRAMIDE [Suspect]
     Dosage: IU
     Route: 015
  4. SULFACETAMIDE SODIUM [Suspect]
     Dosage: IU
     Route: 015

REACTIONS (2)
  - CONGENITAL HIP DEFORMITY [None]
  - DRUG EXPOSURE DURING PREGNANCY [None]
